FAERS Safety Report 6380894-3 (Version None)
Quarter: 2009Q3

REPORT INFORMATION
  Report Type: 
  Country: None (occurrence: None)
  Receive Date: 20090929
  Receipt Date: 20090925
  Transmission Date: 20100115
  Serious: Yes (Hospitalization)
  Sender: FDA-Public Use
  Company Number: B0573175A

PATIENT
  Sex: Male

DRUGS (3)
  1. LAMICTAL [Suspect]
     Indication: BIPOLAR I DISORDER
     Route: 048
     Dates: start: 20081023, end: 20090506
  2. WYPAX [Concomitant]
     Indication: BIPOLAR DISORDER
     Dosage: .5MG PER DAY
     Route: 048
     Dates: start: 20090501, end: 20090506
  3. UNKNOWN DRUG [Concomitant]
     Indication: SLEEP DISORDER
     Route: 065
     Dates: start: 20090417

REACTIONS (4)
  - BIPOLAR I DISORDER [None]
  - LACERATION [None]
  - SELF INJURIOUS BEHAVIOUR [None]
  - SUICIDAL IDEATION [None]
